FAERS Safety Report 5893846-4 (Version None)
Quarter: 2008Q3

REPORT INFORMATION
  Report Type: 
  Country: None (occurrence: None)
  Receive Date: 20080923
  Receipt Date: 20071102
  Transmission Date: 20090109
  Serious: No
  Sender: FDA-Public Use
  Company Number: US-ASTRAZENECA-2007UW25488

PATIENT
  Age: 33 Year
  Sex: Female
  Weight: 81.6 kg

DRUGS (4)
  1. SEROQUEL [Suspect]
     Route: 048
     Dates: start: 20050101
  2. PROZAC [Concomitant]
  3. XANAX [Concomitant]
  4. VICODIN [Concomitant]

REACTIONS (2)
  - ILL-DEFINED DISORDER [None]
  - PAIN [None]
